FAERS Safety Report 7605510-1 (Version None)
Quarter: 2011Q3

REPORT INFORMATION
  Report Type: 
  Country: None (occurrence: None)
  Receive Date: 20110713
  Receipt Date: 20110708
  Transmission Date: 20111222
  Serious: Yes (Other)
  Sender: FDA-Public Use
  Company Number: US-PFIZER INC-2011139813

PATIENT
  Sex: Female

DRUGS (6)
  1. GEODON [Suspect]
     Indication: MAJOR DEPRESSION
     Dosage: 160 MG, DAILY
     Route: 048
  2. GEODON [Suspect]
     Indication: DEPRESSION
     Dosage: 120 MG, DAILY
     Route: 048
  3. WELLBUTRIN [Concomitant]
     Indication: DEPRESSION
     Dosage: 750 MG, DAILY
  4. LAMICTAL [Concomitant]
     Indication: DEPRESSION
     Dosage: 400 MG, DAILY
  5. WELLBUTRIN [Concomitant]
     Indication: MAJOR DEPRESSION
  6. LAMICTAL [Concomitant]
     Indication: MAJOR DEPRESSION

REACTIONS (1)
  - EXTRAPYRAMIDAL DISORDER [None]
